FAERS Safety Report 22400464 (Version 1)
Quarter: 2023Q2

REPORT INFORMATION
  Report Type: Spontaneous
  Country: US (occurrence: None)
  Receive Date: 20230601
  Receipt Date: 20230601
  Transmission Date: 20230721
  Serious: Yes (Hospitalization, Other)
  Sender: FDA-Public Use
  Company Number: None

PATIENT
  Age: 65 Year
  Sex: Female
  Weight: 72.6 kg

DRUGS (3)
  1. ENHERTU [Suspect]
     Active Substance: FAM-TRASTUZUMAB DERUXTECAN-NXKI
     Indication: Breast cancer
     Dosage: 400 MG ONCE  INTRAVENOUS DRIP ?
     Route: 041
     Dates: start: 20230531, end: 20230531
  2. PERTUZUMAB [Suspect]
     Active Substance: PERTUZUMAB
  3. TRASTUZUMAB [Suspect]
     Active Substance: TRASTUZUMAB

REACTIONS (5)
  - Diarrhoea [None]
  - Faeces discoloured [None]
  - Dizziness [None]
  - Immune thrombocytopenia [None]
  - Epistaxis [None]

NARRATIVE: CASE EVENT DATE: 20230601
